FAERS Safety Report 17535564 (Version 2)
Quarter: 2020Q2

REPORT INFORMATION
  Report Type: Spontaneous
  Country: US (occurrence: US)
  Receive Date: 20200312
  Receipt Date: 20200505
  Transmission Date: 20200713
  Serious: Yes (Hospitalization, Other)
  Sender: FDA-Public Use
  Company Number: US-ASTRAZENECA-2020SE34221

PATIENT
  Age: 42 Year
  Sex: Male
  Weight: 85.3 kg

DRUGS (35)
  1. NEXIUM [Suspect]
     Active Substance: ESOMEPRAZOLE MAGNESIUM
     Indication: GASTROOESOPHAGEAL REFLUX DISEASE
     Dosage: UNKNOWN
     Route: 048
     Dates: start: 20110401
  2. TEMAZEPAM. [Concomitant]
     Active Substance: TEMAZEPAM
  3. FUROSEMIDE. [Concomitant]
     Active Substance: FUROSEMIDE
  4. HYDROCHLOROTHIAZIDE. [Concomitant]
     Active Substance: HYDROCHLOROTHIAZIDE
  5. BUMETANIDE. [Concomitant]
     Active Substance: BUMETANIDE
     Indication: HYPERTENSION
     Dates: start: 2019
  6. GABAPENTIN. [Concomitant]
     Active Substance: GABAPENTIN
  7. LEVEMIR [Concomitant]
     Active Substance: INSULIN DETEMIR
  8. LYRICA [Concomitant]
     Active Substance: PREGABALIN
  9. LEVOTHYROXINE. [Concomitant]
     Active Substance: LEVOTHYROXINE
  10. LITHIUM CARBONATE. [Concomitant]
     Active Substance: LITHIUM CARBONATE
  11. PANTOPRAZOLE [Suspect]
     Active Substance: PANTOPRAZOLE
     Indication: GASTROOESOPHAGEAL REFLUX DISEASE
     Dosage: GENERIC40.0MG UNKNOWN
     Route: 065
     Dates: start: 201608
  12. JANUVIA [Concomitant]
     Active Substance: SITAGLIPTIN PHOSPHATE
  13. SINGULAIR [Concomitant]
     Active Substance: MONTELUKAST SODIUM
  14. HUMULIN NOS [Concomitant]
     Active Substance: INSULIN HUMAN
  15. CETIRIZINE [Concomitant]
     Active Substance: CETIRIZINE HYDROCHLORIDE
  16. METOLAZONE. [Concomitant]
     Active Substance: METOLAZONE
  17. NEXIUM [Suspect]
     Active Substance: ESOMEPRAZOLE MAGNESIUM
     Indication: GASTROOESOPHAGEAL REFLUX DISEASE
     Dosage: 40.0MG UNKNOWN
     Route: 048
     Dates: start: 2010, end: 2017
  18. HALOPERIDOL. [Concomitant]
     Active Substance: HALOPERIDOL
  19. VENLAFAXINE [Concomitant]
     Active Substance: VENLAFAXINE HYDROCHLORIDE
  20. LISINOPRIL. [Concomitant]
     Active Substance: LISINOPRIL
  21. RISPERIDONE. [Concomitant]
     Active Substance: RISPERIDONE
  22. CITALOPRAM [Concomitant]
     Active Substance: CITALOPRAM HYDROBROMIDE
  23. SULFAMETHOXAZOLE [Concomitant]
     Active Substance: SULFAMETHOXAZOLE
  24. NIFEDIPINE. [Concomitant]
     Active Substance: NIFEDIPINE
  25. AMITRIPTYLINE [Concomitant]
     Active Substance: AMITRIPTYLINE
     Indication: DEPRESSION
     Dates: start: 2016
  26. LAMOTRIGINE. [Concomitant]
     Active Substance: LAMOTRIGINE
  27. NEXIUM [Suspect]
     Active Substance: ESOMEPRAZOLE MAGNESIUM
     Indication: GASTROOESOPHAGEAL REFLUX DISEASE
     Route: 048
     Dates: start: 2009, end: 2017
  28. PANTOPRAZOLE [Suspect]
     Active Substance: PANTOPRAZOLE
     Indication: GASTROOESOPHAGEAL REFLUX DISEASE
     Dosage: GENERIC UNKNOWN
     Route: 065
     Dates: start: 20160803
  29. DOXYCYCLINE. [Concomitant]
     Active Substance: DOXYCYCLINE
     Indication: INFECTION
     Dates: start: 2017
  30. GLIMEPIRIDE. [Concomitant]
     Active Substance: GLIMEPIRIDE
  31. ACTOPLUS MET [Concomitant]
     Active Substance: METFORMIN HYDROCHLORIDE\PIOGLITAZONE HYDROCHLORIDE
  32. MICARDIS [Concomitant]
     Active Substance: TELMISARTAN
  33. CARVEDILOL. [Concomitant]
     Active Substance: CARVEDILOL
  34. AMLODIPINE [Concomitant]
     Active Substance: AMLODIPINE BESYLATE
  35. CLINDAMYCIN. [Concomitant]
     Active Substance: CLINDAMYCIN

REACTIONS (1)
  - Chronic kidney disease [Not Recovered/Not Resolved]

NARRATIVE: CASE EVENT DATE: 2016
